FAERS Safety Report 14170665 (Version 1)
Quarter: 2017Q4

REPORT INFORMATION
  Report Type: Spontaneous
  Country: US (occurrence: US)
  Receive Date: 20171108
  Receipt Date: 20171108
  Transmission Date: 20180321
  Serious: Yes (Hospitalization, Other)
  Sender: FDA-Public Use
  Company Number: US-GLAXOSMITHKLINE-US2017170163

PATIENT
  Age: 73 Year
  Sex: Female

DRUGS (11)
  1. PRILOSEC [Concomitant]
     Active Substance: OMEPRAZOLE MAGNESIUM
  2. TANZEUM [Suspect]
     Active Substance: ALBIGLUTIDE
     Indication: TYPE 2 DIABETES MELLITUS
     Dosage: 50 MG, WE
     Route: 058
     Dates: start: 201705
  3. AMLODIPINE [Concomitant]
     Active Substance: AMLODIPINE BESYLATE
  4. ESCITALOPRAM [Concomitant]
     Active Substance: ESCITALOPRAM OXALATE
  5. TOPROL XL [Concomitant]
     Active Substance: METOPROLOL SUCCINATE
  6. LIPITOR [Concomitant]
     Active Substance: ATORVASTATIN CALCIUM
  7. NORTRIPTYLINE [Concomitant]
     Active Substance: NORTRIPTYLINE
  8. NOVOLOG MIX 70/30 [Concomitant]
     Active Substance: INSULIN ASPART
  9. MEGARED KRILL OIL [Concomitant]
  10. ASPIRIN (BABY) [Concomitant]
     Active Substance: ASPIRIN
  11. COQ10 [Concomitant]
     Active Substance: UBIDECARENONE

REACTIONS (1)
  - Hernia repair [Recovering/Resolving]

NARRATIVE: CASE EVENT DATE: 20171101
